FAERS Safety Report 5587093-3 (Version None)
Quarter: 2008Q1

REPORT INFORMATION
  Report Type: 
  Country: None (occurrence: None)
  Receive Date: 20080110
  Receipt Date: 20071228
  Transmission Date: 20080703
  Serious: Yes (Hospitalization, Other)
  Sender: FDA-Public Use
  Company Number: DE-WYE-G00626307

PATIENT
  Sex: Male
  Weight: 91.4 kg

DRUGS (4)
  1. VENLAFAXINE HYDROCHLORIDE [Suspect]
     Indication: DEPRESSION
     Dosage: 300 MG / DAY
     Route: 048
     Dates: start: 20050101
  2. VENLAFAXINE HYDROCHLORIDE [Suspect]
     Dosage: 150 MG / DAY
     Route: 048
     Dates: start: 20070918
  3. VENLAFAXINE HYDROCHLORIDE [Suspect]
     Dosage: 75 MG / DAY
     Route: 048
     Dates: start: 20070101
  4. DOXEPIN HCL [Concomitant]
     Indication: SLEEP DISORDER
     Dosage: 25 MG / DAY
     Route: 048

REACTIONS (7)
  - BLOOD PRESSURE INCREASED [None]
  - CHILLS [None]
  - GLOSSODYNIA [None]
  - HYPERHIDROSIS [None]
  - LEUKAEMIA [None]
  - NAUSEA [None]
  - PAIN IN EXTREMITY [None]
